FAERS Safety Report 6268928-8 (Version None)
Quarter: 2009Q3

REPORT INFORMATION
  Report Type: 
  Country: None (occurrence: None)
  Receive Date: 20090715
  Receipt Date: 20090703
  Transmission Date: 20100115
  Serious: No
  Sender: FDA-Public Use
  Company Number: BA-ELI_LILLY_AND_COMPANY-BA200907000838

PATIENT
  Age: 51 Year
  Sex: Female
  Weight: 54 kg

DRUGS (3)
  1. ZYPREXA [Suspect]
     Indication: SCHIZOPHRENIA
     Dosage: 10 MG, UNK
     Route: 048
     Dates: start: 20050101, end: 20090501
  2. ZYPREXA [Suspect]
     Dosage: 5 MG, UNK
     Route: 048
     Dates: start: 20090501, end: 20090622
  3. HALDOL DEPOT [Concomitant]
     Indication: SCHIZOPHRENIA
     Dosage: 50 MG, UNK

REACTIONS (1)
  - WHITE BLOOD CELL COUNT DECREASED [None]
